FAERS Safety Report 13767073 (Version 1)
Quarter: 2017Q3

REPORT INFORMATION
  Report Type: Spontaneous
  Country: IT (occurrence: None)
  Receive Date: 20170717
  Receipt Date: 20170717
  Transmission Date: 20171127
  Serious: Yes (Other)
  Sender: FDA-Public Use
  Company Number: IT2017K5070SPO

PATIENT
  Age: 39 Year
  Sex: Female

DRUGS (1)
  1. LANSOPRAZOLE GENERIC (LANSOPRAZOLE) UNKNOWN [Suspect]
     Active Substance: LANSOPRAZOLE
     Indication: ABDOMINAL PAIN UPPER

REACTIONS (5)
  - Flushing [None]
  - Presyncope [None]
  - Drug hypersensitivity [None]
  - Vomiting [None]
  - Rash pruritic [None]

NARRATIVE: CASE EVENT DATE: 20170515
